FAERS Safety Report 10233915 (Version 3)
Quarter: 2020Q4

REPORT INFORMATION
  Report Type: Report from Study
  Country: JP (occurrence: JP)
  Receive Date: 20140612
  Receipt Date: 20201119
  Transmission Date: 20210113
  Serious: Yes (Other)
  Sender: FDA-Public Use
  Company Number: JP-BRISTOL-MYERS SQUIBB COMPANY-20604377

PATIENT
  Age: 69 Year
  Sex: Male

DRUGS (10)
  1. IRBESARTAN. [Concomitant]
     Active Substance: IRBESARTAN
     Indication: HYPERTENSION
     Dosage: UNK, UNKNOWN
     Route: 048
  2. HALFDIGOXIN [Concomitant]
     Active Substance: DIGOXIN
     Dosage: UNK, UNKNOWN
     Route: 065
     Dates: end: 20140321
  3. VALSARTAN. [Concomitant]
     Active Substance: VALSARTAN
     Dosage: UNK, UNKNOWN
     Route: 065
  4. CARBOPLATIN. [Concomitant]
     Active Substance: CARBOPLATIN
     Indication: LARYNGEAL CANCER
     Dosage: 1 DOSAGE FORM, WEEKLY (1/W)
     Route: 041
     Dates: start: 20140310
  5. PACLITAXEL. [Concomitant]
     Active Substance: PACLITAXEL
     Indication: LARYNGEAL CANCER
     Dosage: 100 MG/M2, WEEKLY (1/W)
     Route: 041
     Dates: start: 20140310
  6. ADALAT [Concomitant]
     Active Substance: NIFEDIPINE
     Indication: HYPERTENSION
     Dosage: UNK, UNKNOWN
     Route: 048
  7. ARTIST [Concomitant]
     Active Substance: CARVEDILOL
     Indication: HYPERTENSION
     Dosage: UNK, UNKNOWN
     Route: 048
  8. CETUXIMAB. [Suspect]
     Active Substance: CETUXIMAB
     Dosage: 250 MG/M2, WEEKLY (1/W)
     Route: 041
     Dates: start: 20140317, end: 20140324
  9. ITOROL [Concomitant]
     Active Substance: ISOSORBIDE MONONITRATE
     Dosage: UNK, UNKNOWN
     Route: 048
  10. CETUXIMAB. [Suspect]
     Active Substance: CETUXIMAB
     Indication: LARYNGEAL CANCER
     Dosage: 400 MG/M2, WEEKLY (1/W)
     Route: 041
     Dates: start: 20140310, end: 20140310

REACTIONS (1)
  - Acute coronary syndrome [Recovered/Resolved]

NARRATIVE: CASE EVENT DATE: 20140325
